FAERS Safety Report 14818583 (Version 2)
Quarter: 2018Q4

REPORT INFORMATION
  Report Type: Spontaneous
  Country: FR (occurrence: FR)
  Receive Date: 20180427
  Receipt Date: 20181026
  Transmission Date: 20190204
  Serious: Yes (Other)
  Sender: FDA-Public Use
  Company Number: FR-MERCK KGAA-2046703

PATIENT
  Age: 37 Year
  Sex: Female

DRUGS (2)
  1. EUTHYROX [Suspect]
     Active Substance: LEVOTHYROXINE SODIUM
     Indication: PRODUCT USED FOR UNKNOWN INDICATION
  2. LEVOTHYROX 125 NF [Suspect]
     Active Substance: LEVOTHYROXINE SODIUM

REACTIONS (10)
  - Abdominal pain upper [None]
  - Hyperthyroidism [Recovered/Resolved]
  - Fatigue [None]
  - Vertigo [None]
  - Decreased activity [None]
  - Stress [None]
  - Anxiety [None]
  - Hypersensitivity [None]
  - Affective disorder [None]
  - Weight decreased [None]

NARRATIVE: CASE EVENT DATE: 20170908
